FAERS Safety Report 9015257 (Version 1)
Quarter: 2013Q1

REPORT INFORMATION
  Report Type: Spontaneous
  Country: US (occurrence: US)
  Receive Date: 20130116
  Receipt Date: 20130116
  Transmission Date: 20140127
  Serious: Yes (Other)
  Sender: FDA-Public Use
  Company Number: US-ELI_LILLY_AND_COMPANY-US201301002000

PATIENT
  Age: 61 Year
  Sex: Male
  Weight: 124.72 kg

DRUGS (5)
  1. BYDUREON [Suspect]
     Indication: TYPE 2 DIABETES MELLITUS
     Dosage: 2 MG, WEEKLY (1/W)
     Route: 058
     Dates: start: 20121021, end: 20121021
  2. BYDUREON [Suspect]
     Dosage: 2 MG, WEEKLY (1/W)
     Route: 058
     Dates: start: 201211, end: 20121228
  3. ONGLYZA [Concomitant]
     Indication: TYPE 2 DIABETES MELLITUS
     Dosage: UNK
     Route: 048
     Dates: end: 20121020
  4. ONGLYZA [Concomitant]
     Dosage: UNK
     Route: 048
     Dates: start: 20121028
  5. DIURETICS [Concomitant]
     Indication: OEDEMA PERIPHERAL
     Dosage: UNK
     Route: 048

REACTIONS (7)
  - Hepatitis C [Not Recovered/Not Resolved]
  - Alanine aminotransferase increased [Not Recovered/Not Resolved]
  - Aspartate aminotransferase increased [Not Recovered/Not Resolved]
  - Serum ferritin increased [Not Recovered/Not Resolved]
  - Constipation [Recovering/Resolving]
  - Injection site nodule [Not Recovered/Not Resolved]
  - Intentional drug misuse [Not Recovered/Not Resolved]
